FAERS Safety Report 15403026 (Version 4)
Quarter: 2018Q4

REPORT INFORMATION
  Report Type: Report from Study
  Country: US (occurrence: US)
  Receive Date: 20180919
  Receipt Date: 20181026
  Transmission Date: 20190204
  Serious: Yes (Hospitalization, Other)
  Sender: FDA-Public Use
  Company Number: US-PFIZER INC-2018340400

PATIENT
  Age: 64 Year
  Sex: Male

DRUGS (6)
  1. DIGOXIN. [Concomitant]
     Active Substance: DIGOXIN
     Dosage: 0.125 MG, 1X/DAY
  2. METOPROLOL. [Concomitant]
     Active Substance: METOPROLOL
     Dosage: 50 MG, 1X/DAY
  3. LANOXIN [Concomitant]
     Active Substance: DIGOXIN
     Dosage: 0.25 MG, UNK
  4. SUTENT [Suspect]
     Active Substance: SUNITINIB MALATE
     Indication: RENAL CANCER
     Dosage: 50 MG, CYCLIC (ONCE DAILY, 4 WEEKS ON, FOLLOWED BY 2 WEEKS OFF)
     Route: 048
     Dates: start: 20180815, end: 20180830
  5. SUTENT [Suspect]
     Active Substance: SUNITINIB MALATE
     Dosage: 37.5 MG, CYCLIC (4 WEEKS ON, 2 WEEKS OFF ONCE DAILY)
     Route: 048
     Dates: start: 20180927
  6. COREG [Concomitant]
     Active Substance: CARVEDILOL
     Dosage: 25 MG, UNK

REACTIONS (13)
  - Pyrexia [Unknown]
  - Hyperhidrosis [Unknown]
  - Fatigue [Not Recovered/Not Resolved]
  - Rash [Not Recovered/Not Resolved]
  - Cough [Unknown]
  - Dyspnoea [Recovering/Resolving]
  - Palpitations [Unknown]
  - Condition aggravated [Not Recovered/Not Resolved]
  - Influenza like illness [Not Recovered/Not Resolved]
  - Pruritus [Unknown]
  - Nausea [Recovering/Resolving]
  - Dizziness [Recovering/Resolving]
  - Dry skin [Unknown]

NARRATIVE: CASE EVENT DATE: 2018
